FAERS Safety Report 15841177 (Version 2)
Quarter: 2019Q1

REPORT INFORMATION
  Report Type: Spontaneous
  Country: IT (occurrence: IT)
  Receive Date: 20190118
  Receipt Date: 20190201
  Transmission Date: 20190417
  Serious: Yes (Hospitalization)
  Sender: FDA-Public Use
  Company Number: IT-TEVA-2019-IT-998812

PATIENT
  Age: 76 Year
  Sex: Male

DRUGS (11)
  1. THEO-DUR [Suspect]
     Active Substance: THEOPHYLLINE ANHYDROUS
     Indication: ASTHMA
     Dosage: 200 MG COMPRESSE A RILASCIO PROLUNGATO
     Route: 048
     Dates: start: 20181116, end: 20181219
  2. SERETIDE DISKUS 50 MICROGRAMMI/500 MICROGRAMMI/DOSE DI POLVERE PER INA [Concomitant]
     Indication: ASTHMA
     Dosage: 50 MICROGRAMS / 500 MICROGRAMS
  3. BRETARIS GENUAIR [Concomitant]
     Active Substance: ACLIDINIUM BROMIDE
     Indication: CHRONIC OBSTRUCTIVE PULMONARY DISEASE
  4. ZOLPIDEM RATIOPHARM 10 MG COMPRESSE RIVESTITE CON FILM [Concomitant]
     Indication: INSOMNIA
     Route: 048
     Dates: start: 20181115, end: 20181219
  5. PANTOPRAZOLO DOC GENERICI 20 MG COMPRESSE GASTRORESISTENTI [Concomitant]
     Indication: GASTROOESOPHAGEAL REFLUX DISEASE
     Route: 048
     Dates: start: 20181114, end: 20181219
  6. AVODART [Concomitant]
     Active Substance: DUTASTERIDE
     Indication: BENIGN PROSTATIC HYPERPLASIA
     Route: 048
     Dates: start: 20181114, end: 20181219
  7. DUOPLAVIN 75 MG/100 MG FILM-COATED TABLETS [Concomitant]
     Indication: ACUTE CORONARY SYNDROME
     Dosage: 75 MG/100 MG
     Route: 048
     Dates: start: 20181114, end: 20181119
  8. FUROSEMIDE. [Suspect]
     Active Substance: FUROSEMIDE
     Indication: OEDEMA
     Route: 048
     Dates: start: 20181114, end: 20181219
  9. ALFUZOSINA RATIOPHARM 10 MG COMPRESSE A RILASCIO PROLUNGATO [Concomitant]
     Active Substance: ALFUZOSIN HYDROCHLORIDE
     Indication: BENIGN PROSTATIC HYPERPLASIA
     Route: 048
     Dates: start: 20181114, end: 20181219
  10. TAREG [Concomitant]
     Active Substance: VALSARTAN
     Indication: HYPERTENSION
     Dosage: 80 MILLIGRAM DAILY;
     Route: 048
     Dates: start: 20181114, end: 20181219
  11. POTASSIO CANRENOATO SANDOZ [Concomitant]
     Dosage: 50 MILLIGRAM DAILY;
     Route: 048
     Dates: start: 20181114

REACTIONS (2)
  - Orthostatic hypotension [Unknown]
  - Fall [Unknown]

NARRATIVE: CASE EVENT DATE: 20181122
